FAERS Safety Report 12095723 (Version 1)
Quarter: 2016Q1

REPORT INFORMATION
  Report Type: Spontaneous
  Country: US (occurrence: US)
  Receive Date: 20160220
  Receipt Date: 20160220
  Transmission Date: 20160526
  Serious: No
  Sender: FDA-Public Use
  Company Number: US-AUROBINDO-AUR-APL-2015-08833

PATIENT

DRUGS (3)
  1. DULOXETINE 60 MG [Suspect]
     Active Substance: DULOXETINE
     Indication: FIBROMYALGIA
     Dosage: 60 MG, UNK
     Route: 065
  2. DULOXETINE 60 MG [Suspect]
     Active Substance: DULOXETINE
     Indication: DEPRESSION
  3. DULOXETINE 60 MG [Suspect]
     Active Substance: DULOXETINE
     Indication: PAIN

REACTIONS (3)
  - Pain [Unknown]
  - Product substitution issue [Unknown]
  - Headache [Unknown]
